FAERS Safety Report 23896767 (Version 2)
Quarter: 2024Q2

REPORT INFORMATION
  Report Type: Report from Study
  Country: US (occurrence: US)
  Receive Date: 20240524
  Receipt Date: 20240624
  Transmission Date: 20240716
  Serious: Yes (Other)
  Sender: FDA-Public Use
  Company Number: US-ABBVIE-5769301

PATIENT
  Age: 64 Year
  Sex: Male

DRUGS (2)
  1. RINVOQ [Suspect]
     Active Substance: UPADACITINIB
     Indication: Crohn^s disease
     Route: 048
     Dates: start: 20230830
  2. RINVOQ [Suspect]
     Active Substance: UPADACITINIB
     Indication: Crohn^s disease
     Route: 048
     Dates: start: 2023, end: 2023

REACTIONS (5)
  - Intestinal obstruction [Recovering/Resolving]
  - Infection [Not Recovered/Not Resolved]
  - Pneumonia cryptococcal [Recovering/Resolving]
  - Colectomy [Unknown]
  - Small intestinal resection [Unknown]

NARRATIVE: CASE EVENT DATE: 20231201
